FAERS Safety Report 5965375-0 (Version None)
Quarter: 2008Q4

REPORT INFORMATION
  Report Type: 
  Country: None (occurrence: None)
  Receive Date: 20081125
  Receipt Date: 20081117
  Transmission Date: 20090506
  Serious: No
  Sender: FDA-Public Use
  Company Number: US-JNJFOC-20081104433

PATIENT
  Sex: Male
  Weight: 124.74 kg

DRUGS (5)
  1. DURAGESIC-100 [Suspect]
     Indication: BACK PAIN
     Route: 062
  2. LEXAPRO [Concomitant]
     Indication: DEPRESSION
     Route: 048
  3. FLEXERIL [Concomitant]
     Indication: MUSCLE RELAXANT THERAPY
     Route: 048
  4. VICADIN [Concomitant]
     Indication: PAIN
     Route: 048
  5. TRAZODONE HCL [Concomitant]
     Indication: SLEEP DISORDER THERAPY
     Route: 048

REACTIONS (1)
  - WRONG TECHNIQUE IN DRUG USAGE PROCESS [None]
